FAERS Safety Report 18328796 (Version 1)
Quarter: 2020Q3

REPORT INFORMATION
  Report Type: Spontaneous
  Country: US (occurrence: US)
  Receive Date: 20200929
  Receipt Date: 20200929
  Transmission Date: 20201103
  Serious: No
  Sender: FDA-Public Use
  Company Number: None

PATIENT
  Sex: Male

DRUGS (1)
  1. VIGABATRIN POWDER@ [Suspect]
     Active Substance: VIGABATRIN
     Indication: EPILEPSY
     Dosage: 5ML TWICE DAILY FOR 1 WEEK, THEN 10ML TWICE DAILY FOR 1 WEEK, THEN 1.5ML TWICE DAILY THEREAFTER.
     Route: 048
     Dates: start: 202008

REACTIONS (2)
  - Therapy interrupted [None]
  - Surgery [None]
